FAERS Safety Report 7570198-5 (Version None)
Quarter: 2011Q2

REPORT INFORMATION
  Report Type: 
  Country: None (occurrence: None)
  Receive Date: 20110624
  Receipt Date: 20110607
  Transmission Date: 20111010
  Serious: No
  Sender: FDA-Public Use
  Company Number: US-B.I. PHARMACEUTICALS,INC./RIDGEFIELD-2011-BP-09482BP

PATIENT
  Age: 84 Year
  Sex: Male

DRUGS (8)
  1. PRADAXA [Suspect]
     Indication: ATRIAL FIBRILLATION
     Dosage: 300 MG
     Route: 048
     Dates: start: 20110321
  2. LUMIGAN [Concomitant]
     Indication: PROPHYLAXIS
     Route: 048
  3. SIMVASTATIN [Concomitant]
     Indication: ARTERIAL DISORDER
  4. TIMOLOL MALEATE [Concomitant]
     Indication: PROPHYLAXIS
     Route: 048
  5. AVODART [Concomitant]
     Indication: PROSTATOMEGALY
     Route: 048
  6. RYTHMOL [Concomitant]
     Indication: ATRIAL FIBRILLATION
     Route: 048
  7. SIMVASTATIN [Concomitant]
     Indication: CARDIAC DISORDER
     Route: 048
     Dates: start: 20080101
  8. DILTIAZEM [Concomitant]
     Indication: ATRIAL FIBRILLATION
     Route: 048

REACTIONS (3)
  - HAEMORRHOIDS [None]
  - ANORECTAL DISCOMFORT [None]
  - ABDOMINAL PAIN UPPER [None]
